FAERS Safety Report 8457818-8 (Version None)
Quarter: 2012Q2

REPORT INFORMATION
  Report Type: 
  Country: None (occurrence: None)
  Receive Date: 20120622
  Receipt Date: 20120612
  Transmission Date: 20120825
  Serious: Yes (Hospitalization)
  Sender: FDA-Public Use
  Company Number: US-BAYER-2010-003167

PATIENT
  Age: 37 Year
  Sex: Female
  Weight: 155 kg

DRUGS (7)
  1. ESKALITH [Concomitant]
  2. ATARAX [Concomitant]
     Indication: ANXIETY
  3. YASMIN [Suspect]
     Indication: CONTRACEPTION
     Dates: start: 20010101, end: 20010101
  4. RISPERDAL [Concomitant]
  5. DOXEPIN [Concomitant]
  6. SINEQUAN [Concomitant]
  7. LITHIUM CARBONATE [Concomitant]

REACTIONS (6)
  - ANXIETY [None]
  - PULMONARY EMBOLISM [None]
  - PAIN [None]
  - DEPRESSION [None]
  - DEEP VEIN THROMBOSIS [None]
  - THROMBOSIS [None]
